FAERS Safety Report 23771341 (Version 1)
Quarter: 2024Q2

REPORT INFORMATION
  Report Type: Report from Study
  Country: US (occurrence: US)
  Receive Date: 20240423
  Receipt Date: 20240423
  Transmission Date: 20240716
  Serious: Yes (Death, Other)
  Sender: FDA-Public Use
  Company Number: US-SUN PHARMACEUTICAL INDUSTRIES LTD-2024R1-442567

PATIENT
  Age: 61 Year
  Sex: Male

DRUGS (3)
  1. AMPICILLIN SODIUM\SULBACTAM SODIUM [Suspect]
     Active Substance: AMPICILLIN SODIUM\SULBACTAM SODIUM
     Indication: Pneumonia
     Dosage: 9 GRAM 8 HOURS AS A PROLONGED INFUSION OVER 4 HOURS
     Route: 065
  2. MINOCYCLINE [Suspect]
     Active Substance: MINOCYCLINE HYDROCHLORIDE
     Indication: Pneumonia
     Dosage: 200 MILLIGRAM EVERY 12 HOURS OVER A 1 HOUR
     Route: 065
  3. POLYMYXIN B [Suspect]
     Active Substance: POLYMYXIN B
     Indication: Pneumonia
     Dosage: 25 000 IU/KG LOADING DOSE FOLLOWED BY 15 000 IU/KG EVERY 12 HOURS GIVEN OVER A 2-HOUR INFUSION
     Route: 065

REACTIONS (2)
  - Pneumonia [Fatal]
  - Treatment failure [Fatal]
